FAERS Safety Report 14328011 (Version 1)
Quarter: 2017Q4

REPORT INFORMATION
  Report Type: Spontaneous
  Country: JP (occurrence: JP)
  Receive Date: 20171227
  Receipt Date: 20171227
  Transmission Date: 20180321
  Serious: Yes (Death)
  Sender: FDA-Public Use
  Company Number: JP-PFIZER INC-2017549610

PATIENT
  Age: 101 Year
  Sex: Male

DRUGS (1)
  1. CABASER 0.25MG [Suspect]
     Active Substance: CABERGOLINE
     Dosage: UNK
     Route: 048

REACTIONS (1)
  - Marasmus [Fatal]
